FAERS Safety Report 8507452-6 (Version None)
Quarter: 2012Q3

REPORT INFORMATION
  Report Type: 
  Country: None (occurrence: None)
  Receive Date: 20120712
  Receipt Date: 20120702
  Transmission Date: 20120928
  Serious: Yes (Death)
  Sender: FDA-Public Use
  Company Number: GB-TEVA-344568ISR

PATIENT
  Age: 40 Year
  Sex: Male

DRUGS (9)
  1. METHADONE HCL [Interacting]
     Indication: PAIN
     Dosage: INDICATION: PAIN CONTROL
     Route: 048
     Dates: start: 20111025, end: 20111030
  2. DIAZEPAM [Concomitant]
     Indication: ANXIETY
     Route: 048
     Dates: start: 20111019
  3. MULTI-VITAMIN [Concomitant]
  4. LANSOPRAZOLE [Concomitant]
     Indication: GASTRITIS
     Route: 048
     Dates: start: 20111019
  5. VENTOLIN [Concomitant]
  6. CLARITHROMYCIN [Suspect]
     Indication: LOWER RESPIRATORY TRACT INFECTION
     Route: 048
     Dates: start: 20111001
  7. ORAMORPH SR [Concomitant]
     Indication: PAIN
     Route: 048
     Dates: start: 20110707, end: 20111025
  8. HUMIRA [Concomitant]
     Indication: CROHN'S DISEASE
     Dosage: CONTINUED
     Route: 030
     Dates: start: 20111005
  9. ADCAL-D3 [Concomitant]
     Indication: CROHN'S DISEASE
     Dosage: CONTINUED
     Route: 048
     Dates: start: 20110808

REACTIONS (2)
  - INHIBITORY DRUG INTERACTION [None]
  - DEATH [None]
